FAERS Safety Report 6034065-0 (Version None)
Quarter: 2009Q1

REPORT INFORMATION
  Report Type: 
  Country: None (occurrence: None)
  Receive Date: 20090108
  Receipt Date: 20081229
  Transmission Date: 20090719
  Serious: Yes (Death, Other)
  Sender: FDA-Public Use
  Company Number: 2009US000006

PATIENT
  Age: 94 Year
  Sex: Female

DRUGS (1)
  1. LEXISCAN [Suspect]
     Indication: SCAN MYOCARDIAL PERFUSION
     Dosage: UNK, UNKNOWN/D, UNKNOWN
     Dates: start: 20081226, end: 20081226

REACTIONS (3)
  - CHEST PAIN [None]
  - ELECTROCARDIOGRAM CHANGE [None]
  - PULMONARY OEDEMA [None]
